FAERS Safety Report 18786837 (Version 1)
Quarter: 2021Q1

REPORT INFORMATION
  Report Type: Other
  Country: US (occurrence: US)
  Receive Date: 20210125
  Receipt Date: 20210125
  Transmission Date: 20210419
  Serious: No
  Sender: FDA-Public Use
  Company Number: US-ROCHE-2626192

PATIENT
  Age: 53 Year
  Sex: Female

DRUGS (10)
  1. LEVETIRACETAM. [Concomitant]
     Active Substance: LEVETIRACETAM
  2. METHYLPREDNISOLONE. [Concomitant]
     Active Substance: METHYLPREDNISOLONE
     Dosage: FOR 5 DAYS
  3. CLONAZEPAM. [Suspect]
     Active Substance: CLONAZEPAM
     Indication: SEIZURE
     Route: 065
  4. CARBAMAZEPINE. [Concomitant]
     Active Substance: CARBAMAZEPINE
  5. RITUXIMAB. [Suspect]
     Active Substance: RITUXIMAB
     Indication: IMMUNOMODULATORY THERAPY
     Route: 041
  6. LACOSAMIDE. [Concomitant]
     Active Substance: LACOSAMIDE
  7. ZONISAMIDE. [Concomitant]
     Active Substance: ZONISAMIDE
  8. VIGABATRIN. [Concomitant]
     Active Substance: VIGABATRIN
  9. LORAZEPAM. [Concomitant]
     Active Substance: LORAZEPAM
  10. PERAMPANEL [Concomitant]
     Active Substance: PERAMPANEL

REACTIONS (1)
  - Drug ineffective [Unknown]
